FAERS Safety Report 5762287-2 (Version None)
Quarter: 2008Q2

REPORT INFORMATION
  Report Type: 
  Country: None (occurrence: None)
  Receive Date: 20080609
  Receipt Date: 20080528
  Transmission Date: 20081010
  Serious: Yes (Hospitalization, Other)
  Sender: FDA-Public Use
  Company Number: US-AMGEN-KDL278403

PATIENT
  Sex: Female
  Weight: 50 kg

DRUGS (12)
  1. PROCRIT [Suspect]
     Indication: RENAL FAILURE CHRONIC
     Route: 058
     Dates: end: 20080508
  2. CLONIDINE [Concomitant]
  3. ASPIRIN [Concomitant]
  4. LISINOPRIL [Concomitant]
     Route: 048
  5. LOPRESSOR [Concomitant]
  6. COZAAR [Concomitant]
  7. PREDNISONE TAB [Concomitant]
  8. PROGRAF [Concomitant]
  9. RAPAMUNE [Concomitant]
  10. ZOCOR [Concomitant]
  11. INSULIN [Concomitant]
  12. TACROLIMUS [Concomitant]

REACTIONS (4)
  - ANAEMIA [None]
  - APLASIA PURE RED CELL [None]
  - KIDNEY TRANSPLANT REJECTION [None]
  - LOBAR PNEUMONIA [None]
